FAERS Safety Report 16534282 (Version 1)
Quarter: 2019Q3

REPORT INFORMATION
  Report Type: Spontaneous
  Country: US (occurrence: US)
  Receive Date: 20190705
  Receipt Date: 20190705
  Transmission Date: 20191004
  Serious: No
  Sender: FDA-Public Use
  Company Number: US-CELGENEUS-USA-20190609392

PATIENT
  Age: 42 Year
  Sex: Male

DRUGS (2)
  1. OTEZLA [Suspect]
     Active Substance: APREMILAST
     Indication: GUTTATE PSORIASIS
     Dosage: 60 MILLIGRAM
     Route: 048
     Dates: start: 201906
  2. OTEZLA [Suspect]
     Active Substance: APREMILAST
     Indication: GUTTATE PSORIASIS
     Dosage: 10,20 AND 30 MILLIGRAM
     Route: 048
     Dates: start: 20190610

REACTIONS (3)
  - Psoriasis [Unknown]
  - Pharyngitis streptococcal [Unknown]
  - Stress [Unknown]

NARRATIVE: CASE EVENT DATE: 20190617
